FAERS Safety Report 17261523 (Version 1)
Quarter: 2020Q1

REPORT INFORMATION
  Report Type: Spontaneous
  Country: US (occurrence: US)
  Receive Date: 20200113
  Receipt Date: 20200113
  Transmission Date: 20200409
  Serious: Yes (Other)
  Sender: FDA-Public Use
  Company Number: US-SA-2020SA008037

PATIENT
  Age: 58 Year
  Sex: Male

DRUGS (11)
  1. HYDROCHLOROTHIAZIDE;METOPROLOL [Concomitant]
  2. CITALOPRAM [Concomitant]
     Active Substance: CITALOPRAM HYDROBROMIDE
  3. HUMALOG [Concomitant]
     Active Substance: INSULIN LISPRO
  4. METFORMIN HCL [Concomitant]
     Active Substance: METFORMIN HYDROCHLORIDE
  5. LISINOPRIL. [Concomitant]
     Active Substance: LISINOPRIL
  6. PRALUENT [Suspect]
     Active Substance: ALIROCUMAB
     Indication: CEREBRAL INFARCTION
     Dosage: 75 MG, QOW
     Route: 058
  7. GABAPENTIN. [Concomitant]
     Active Substance: GABAPENTIN
  8. LANTUS [Concomitant]
     Active Substance: INSULIN GLARGINE
  9. VITAMIN C [Concomitant]
     Active Substance: ASCORBIC ACID
  10. XARELTO [Concomitant]
     Active Substance: RIVAROXABAN
  11. COQ10 [ASCORBIC ACID;BETACAROTENE;CUPRIC OXIDE;MANGANESE SULFATE;SELEN [Concomitant]

REACTIONS (1)
  - Cerebrovascular accident [Unknown]

NARRATIVE: CASE EVENT DATE: 2019
